FAERS Safety Report 15042185 (Version 2)
Quarter: 2018Q3

REPORT INFORMATION
  Report Type: Spontaneous
  Country: US (occurrence: US)
  Receive Date: 20180621
  Receipt Date: 20180906
  Transmission Date: 20181010
  Serious: No
  Sender: FDA-Public Use
  Company Number: US-PFIZER INC-2018251681

PATIENT
  Age: 65 Year
  Sex: Female

DRUGS (1)
  1. ZOLOFT [Suspect]
     Active Substance: SERTRALINE HYDROCHLORIDE
     Dosage: UNK
     Dates: start: 2013

REACTIONS (3)
  - Disturbance in attention [Unknown]
  - Drug ineffective [Unknown]
  - Memory impairment [Unknown]
